FAERS Safety Report 8890951 (Version 2)
Quarter: 2012Q4

REPORT INFORMATION
  Report Type: 
  Country: IT (occurrence: IT)
  Receive Date: 20121107
  Receipt Date: 20121109
  Transmission Date: 20130627
  Serious: Yes (Hospitalization)
  Sender: FDA-Public Use
  Company Number: IT-PFIZER INC-2009270340

PATIENT
  Age: 68 Year
  Sex: Male

DRUGS (18)
  1. PLATAMINE [Suspect]
     Indication: SMALL CELL LUNG CANCER
     Dosage: 0.8929 mg (25 mg,1 in 28 D)
     Route: 042
     Dates: start: 20090727, end: 20090727
  2. PLATAMINE [Suspect]
     Dosage: 125 mg, cyclic
     Route: 042
     Dates: start: 20090727, end: 20090802
  3. LASTET [Suspect]
     Indication: SMALL CELL LUNG CANCER
     Dosage: 4.6429 mg (130 mg,1 in 28 D)
     Route: 041
     Dates: start: 20090727, end: 20090727
  4. ETOPOSIDE [Suspect]
     Indication: SMALL CELL LUNG CANCER
     Dosage: 650 mg, cyclic
     Route: 042
     Dates: start: 20090729, end: 20090802
  5. OMEPRAZOLE [Concomitant]
     Dosage: UNK
  6. SOLDESAM [Concomitant]
     Indication: SMALL CELL LUNG CANCER
     Dosage: 32 drops x2 daily
     Route: 048
     Dates: start: 20090727, end: 20090810
  7. CONGESCOR [Concomitant]
     Indication: HYPERTENSION
     Dosage: 2.5 mg, daily
     Route: 048
     Dates: start: 20090727, end: 20090810
  8. ENAPREN [Concomitant]
     Indication: HYPERTENSION
     Dosage: 2.5 mg, daily
     Route: 048
     Dates: start: 20090727
  9. SELEPARINA [Concomitant]
     Dosage: 0.4 ml, 1x/day
     Route: 058
     Dates: start: 20090727
  10. SPIRIVA [Concomitant]
     Dosage: 1 table x day
  11. VENTOLIN [Concomitant]
     Dosage: 1puff x2
  12. TAVOR [Concomitant]
     Dosage: 2.5 mg,unk
  13. CO-EFFERALGAN [Concomitant]
     Dosage: 1 packet
  14. GRANISETRON [Concomitant]
  15. MANNITOL [Concomitant]
  16. DECADRON [Concomitant]
     Dosage: UNK
  17. KYTRIL [Concomitant]
  18. NAPRILENE [Concomitant]
     Dosage: UNK

REACTIONS (3)
  - Pancytopenia [Recovered/Resolved with Sequelae]
  - Pyrexia [Recovered/Resolved]
  - Subcutaneous abscess [Recovered/Resolved with Sequelae]
